FAERS Safety Report 9444230 (Version 2)
Quarter: 2013Q4

REPORT INFORMATION
  Report Type: Report from Study
  Country: BR (occurrence: BR)
  Receive Date: 20130807
  Receipt Date: 20131009
  Transmission Date: 20140711
  Serious: Yes (Other)
  Sender: FDA-Public Use
  Company Number: PHHY2013BR083586

PATIENT
  Sex: Female
  Weight: 70 kg

DRUGS (2)
  1. EXJADE [Suspect]
     Indication: ANAEMIA
     Dosage: 2 DF, UNK
     Route: 048
  2. FOLIC ACID [Concomitant]
     Dosage: UNK UKN, UNK

REACTIONS (3)
  - Skin ulcer [Not Recovered/Not Resolved]
  - Pain [Not Recovered/Not Resolved]
  - Anaemia [Not Recovered/Not Resolved]
